FAERS Safety Report 5646504-5 (Version None)
Quarter: 2008Q1

REPORT INFORMATION
  Report Type: 
  Country: None (occurrence: None)
  Receive Date: 20080228
  Receipt Date: 20080228
  Transmission Date: 20080703
  Serious: Yes (Hospitalization)
  Sender: FDA-Public Use
  Company Number: None

PATIENT
  Sex: Female
  Weight: 46.7205 kg

DRUGS (9)
  1. LIDOCAINE [Suspect]
     Indication: NERVE BLOCK
     Dosage: PARAVERTEBRAL NERVE BLOCK
     Dates: start: 20070206
  2. TYLENOL (CAPLET) [Concomitant]
  3. LEVBID [Concomitant]
  4. BACLOFEN [Concomitant]
  5. AMBIEN [Concomitant]
  6. COZAAR [Concomitant]
  7. DARVOCET-N 100 [Concomitant]
  8. FIORICET [Concomitant]
  9. NICOTINE [Concomitant]

REACTIONS (4)
  - DYSPHAGIA [None]
  - HYPOAESTHESIA [None]
  - NYSTAGMUS [None]
  - PAIN [None]
